FAERS Safety Report 10194041 (Version 1)
Quarter: 2014Q2

REPORT INFORMATION
  Report Type: Spontaneous
  Country: US (occurrence: US)
  Receive Date: 20140524
  Receipt Date: 20140524
  Transmission Date: 20141212
  Serious: No
  Sender: FDA-Public Use
  Company Number: US-SANOFI-AVENTIS-2013SA055167

PATIENT
  Age: 66 Year
  Sex: Male

DRUGS (1)
  1. LANTUS [Suspect]
     Indication: TYPE 2 DIABETES MELLITUS
     Dosage: DOSE:20 UNIT(S)
     Route: 051
     Dates: start: 20130517

REACTIONS (4)
  - Pollakiuria [Unknown]
  - Urine output increased [Unknown]
  - Dizziness [Unknown]
  - Blood glucose increased [Unknown]
